FAERS Safety Report 22608069 (Version 1)
Quarter: 2023Q2

REPORT INFORMATION
  Report Type: Report from Study
  Country: AU (occurrence: AU)
  Receive Date: 20230616
  Receipt Date: 20230616
  Transmission Date: 20230722
  Serious: Yes (Hospitalization, Other)
  Sender: FDA-Public Use
  Company Number: AU-BRISTOL-MYERS SQUIBB COMPANY-2023-084955

PATIENT
  Age: 62 Year
  Sex: Male

DRUGS (3)
  1. NIVOLUMAB [Suspect]
     Active Substance: NIVOLUMAB
     Indication: Hormone-refractory prostate cancer
     Route: 042
     Dates: start: 20230228, end: 20230322
  2. IPILIMUMAB [Suspect]
     Active Substance: IPILIMUMAB
     Indication: Hormone-refractory prostate cancer
     Route: 042
     Dates: start: 20230228, end: 20230228
  3. 177LU-PSMA-R2 [Suspect]
     Active Substance: 177LU-PSMA-R2
     Indication: Hormone-refractory prostate cancer
     Route: 042
     Dates: start: 20230301, end: 20230301

REACTIONS (4)
  - Hypersensitivity [Not Recovered/Not Resolved]
  - Myocarditis [Unknown]
  - Cardiac failure [Unknown]
  - Chills [Unknown]

NARRATIVE: CASE EVENT DATE: 20230322
